FAERS Safety Report 24697729 (Version 2)
Quarter: 2025Q3

REPORT INFORMATION
  Report Type: Spontaneous
  Country: EU (occurrence: EU)
  Receive Date: 20241204
  Receipt Date: 20250924
  Transmission Date: 20251021
  Serious: No
  Sender: BRISTOL-MYERS SQUIBB COMPANY
  Company Number: EU-BRISTOL-MYERS SQUIBB COMPANY-2024-187417

PATIENT
  Age: 58 Year
  Sex: Female

DRUGS (3)
  1. CAMZYOS [Suspect]
     Active Substance: MAVACAMTEN
     Indication: Hypertrophic cardiomyopathy
     Dates: start: 20240113, end: 20240220
  2. CAMZYOS [Suspect]
     Active Substance: MAVACAMTEN
  3. DISOPYRAMIDE [Concomitant]
     Active Substance: DISOPYRAMIDE
     Indication: Product used for unknown indication

REACTIONS (1)
  - No adverse event [Unknown]
